FAERS Safety Report 8428584-7 (Version None)
Quarter: 2012Q2

REPORT INFORMATION
  Report Type: 
  Country: None (occurrence: None)
  Receive Date: 20120606
  Receipt Date: 20120606
  Transmission Date: 20120825
  Serious: Yes (Other)
  Sender: FDA-Public Use
  Company Number: None

PATIENT
  Sex: Female
  Weight: 56.6996 kg

DRUGS (2)
  1. BONIVA [Suspect]
     Indication: OSTEOPOROSIS
     Dosage: ONCE-MONTHLY BY MOUTH
     Route: 048
     Dates: start: 20091001, end: 20110201
  2. FOSAMAX [Suspect]
     Indication: OSTEOPOROSIS
     Dosage: 2000 FOR 3 MONTHS ONCE A WEEK BY MOUTH
     Route: 048
     Dates: start: 20000101

REACTIONS (3)
  - BONE LOSS [None]
  - TOOTH INFECTION [None]
  - OSTEONECROSIS OF JAW [None]
